FAERS Safety Report 25614676 (Version 2)
Quarter: 2025Q3

REPORT INFORMATION
  Report Type: Spontaneous
  Country: US (occurrence: US)
  Receive Date: 20250729
  Receipt Date: 20250929
  Transmission Date: 20251020
  Serious: No
  Sender: IPSEN BIOPHARMACEUTICALS, INC.
  Company Number: US-IPSEN Group, Research and Development-2025-18308

PATIENT
  Age: 55 Year
  Sex: Female

DRUGS (1)
  1. IQIRVO [Suspect]
     Active Substance: ELAFIBRANOR
     Indication: Product used for unknown indication
     Route: 048
     Dates: start: 20250311

REACTIONS (3)
  - Product dose omission issue [Unknown]
  - Pruritus [Recovered/Resolved]
  - Abdominal pain upper [Unknown]
